FAERS Safety Report 5008465-1 (Version None)
Quarter: 2006Q2

REPORT INFORMATION
  Report Type: 
  Country: None (occurrence: None)
  Receive Date: 20060522
  Receipt Date: 20060522
  Transmission Date: 20061013
  Serious: Yes (Life-Threatening, Hospitalization)
  Sender: FDA-Public Use
  Company Number: None

PATIENT
  Sex: Female
  Weight: 58.9676 kg

DRUGS (1)
  1. CELEBREX [Suspect]
     Indication: SHOULDER OPERATION
     Dosage: 200MG

REACTIONS (3)
  - ERYTHEMA [None]
  - PRURITUS [None]
  - SWOLLEN TONGUE [None]
